FAERS Safety Report 6468514-0 (Version None)
Quarter: 2009Q4

REPORT INFORMATION
  Report Type: 
  Country: None (occurrence: None)
  Receive Date: 20091203
  Receipt Date: 20091125
  Transmission Date: 20100525
  Serious: Yes (Hospitalization)
  Sender: FDA-Public Use
  Company Number: JP-JNJFOC-20091107856

PATIENT

DRUGS (1)
  1. ITRIZOLE [Suspect]
     Indication: TINEA PEDIS
     Route: 048

REACTIONS (1)
  - ATRIOVENTRICULAR BLOCK [None]
